FAERS Safety Report 8625025-1 (Version None)
Quarter: 2012Q3

REPORT INFORMATION
  Report Type: 
  Country: None (occurrence: None)
  Receive Date: 20120827
  Receipt Date: 20111128
  Transmission Date: 20120928
  Serious: Yes (Other)
  Sender: FDA-Public Use
  Company Number: US-009507513-1208USA007278

PATIENT

DRUGS (10)
  1. REBETOL [Suspect]
     Indication: HEPATITIS C
     Dosage: 200 MG, UNK
  2. LAMOTRIGINE [Concomitant]
  3. VICTRELIS [Suspect]
     Indication: HEPATITIS
     Dosage: 800 MG, TID
     Route: 048
  4. FISH OIL [Concomitant]
  5. PEGINTERFERON ALFA-2A [Suspect]
     Indication: HEPATITIS C
     Dosage: 180 MICROGRAMS/METER
  6. MELATONIN [Concomitant]
  7. HYDROCODONE BITARTRATE [Concomitant]
  8. NEXIUM [Concomitant]
  9. CLONAZEPAM [Concomitant]
  10. ZOFRAN [Concomitant]

REACTIONS (1)
  - BRONCHITIS [None]
